FAERS Safety Report 18735419 (Version 1)
Quarter: 2021Q1

REPORT INFORMATION
  Report Type: Spontaneous
  Country: US (occurrence: US)
  Receive Date: 20210113
  Receipt Date: 20210113
  Transmission Date: 20210419
  Serious: No
  Sender: FDA-Public Use
  Company Number: None

PATIENT
  Age: 82 Year
  Sex: Female
  Weight: 81.65 kg

DRUGS (1)
  1. MECLIZINE 25MG TABLET?SUB MEDI [Suspect]
     Active Substance: MECLIZINE HYDROCHLORIDE
     Indication: VERTIGO
     Dosage: ?          QUANTITY:1 TABLET OR 1/2;?
     Route: 048

REACTIONS (5)
  - Upper limb fracture [None]
  - Head injury [None]
  - Ligament sprain [None]
  - Asthenia [None]
  - Arthropathy [None]

NARRATIVE: CASE EVENT DATE: 20180516
